FAERS Safety Report 11782283 (Version 1)
Quarter: 2015Q4

REPORT INFORMATION
  Report Type: Spontaneous
  Country: US (occurrence: US)
  Receive Date: 20151127
  Receipt Date: 20151127
  Transmission Date: 20160305
  Serious: Yes (Hospitalization)
  Sender: FDA-Public Use
  Company Number: US-009507513-1511USA014177

PATIENT
  Age: 81 Year
  Sex: Male

DRUGS (2)
  1. CUBICIN [Suspect]
     Active Substance: DAPTOMYCIN
     Indication: POST PROCEDURAL INFECTION
     Dosage: UNK
     Route: 042
     Dates: start: 20151030, end: 20151117
  2. CUBICIN [Suspect]
     Active Substance: DAPTOMYCIN
     Indication: CORYNEBACTERIUM INFECTION

REACTIONS (2)
  - Eosinophilic pneumonia [Recovered/Resolved]
  - Renal impairment [Unknown]

NARRATIVE: CASE EVENT DATE: 20151118
